FAERS Safety Report 7068863-1 (Version None)
Quarter: 2010Q4

REPORT INFORMATION
  Report Type: 
  Country: None (occurrence: None)
  Receive Date: 20101028
  Receipt Date: 20101019
  Transmission Date: 20110411
  Serious: Yes (Hospitalization)
  Sender: FDA-Public Use
  Company Number: IT-SANOFI-AVENTIS-2010SA057397

PATIENT
  Age: 83 Year
  Sex: Female

DRUGS (4)
  1. MULTAQ [Suspect]
     Route: 048
     Dates: start: 20100920, end: 20100921
  2. LANSOX [Concomitant]
     Indication: PRODUCT USED FOR UNKNOWN INDICATION
     Route: 048
  3. TAPAZOLE [Concomitant]
     Indication: HYPERTHYROIDISM
     Route: 048
  4. COUMADIN [Concomitant]
     Indication: PRODUCT USED FOR UNKNOWN INDICATION
     Route: 048

REACTIONS (1)
  - ATRIOVENTRICULAR BLOCK COMPLETE [None]
